FAERS Safety Report 8411916 (Version 4)
Quarter: 2012Q4

REPORT INFORMATION
  Report Type: Report from Study
  Country: HU (occurrence: HU)
  Receive Date: 20120217
  Receipt Date: 20121003
  Transmission Date: 20130627
  Serious: Yes (Death, Life-Threatening, Hospitalization)
  Sender: FDA-Public Use
  Company Number: HU-SANOFI-AVENTIS-2012SA008600

PATIENT
  Age: 75 Year
  Sex: Male
  Weight: 76 kg

DRUGS (4)
  1. CABAZITAXEL [Suspect]
     Indication: CARCINOMA OF THE PROSTATE METASTATIC
     Route: 042
     Dates: start: 20110929, end: 20110929
  2. CABAZITAXEL [Suspect]
     Indication: CARCINOMA OF THE PROSTATE METASTATIC
     Route: 042
     Dates: start: 20120202, end: 20120202
  3. PREDNISOLONE [Suspect]
     Indication: CARCINOMA OF THE PROSTATE METASTATIC
     Dates: start: 20110929, end: 20120207
  4. MEFORAL [Concomitant]
     Indication: DIABETES MELLITUS
     Route: 048

REACTIONS (4)
  - Diabetic ketoacidosis [Fatal]
  - Pneumonia [Fatal]
  - Febrile neutropenia [Fatal]
  - Agranulocytosis [Fatal]
